FAERS Safety Report 6711573-8 (Version None)
Quarter: 2010Q2

REPORT INFORMATION
  Report Type: 
  Country: None (occurrence: None)
  Receive Date: 20100505
  Receipt Date: 20100423
  Transmission Date: 20101027
  Serious: Yes (Other)
  Sender: FDA-Public Use
  Company Number: PHHY2010CA26608

PATIENT
  Sex: Female
  Weight: 63.6 kg

DRUGS (8)
  1. ACLASTA/ZOLEDRONATE T29581+A+ [Suspect]
     Indication: OSTEOPOROSIS
     Dosage: 5MG/100ML
     Route: 042
     Dates: start: 20091116
  2. DIDRONEL [Concomitant]
     Dosage: 400 MG, UNK
  3. EVISTA [Concomitant]
     Dosage: 670 MG, UNK
  4. HORMONES [Concomitant]
  5. FORTEO [Concomitant]
  6. MIACALCIN [Concomitant]
  7. VITAMIN D [Concomitant]
     Dosage: 400 IU, BID
  8. CALCIUM [Concomitant]
     Dosage: 500 MG, BID

REACTIONS (1)
  - SKULL FRACTURE [None]
